FAERS Safety Report 5541527-9 (Version None)
Quarter: 2007Q4

REPORT INFORMATION
  Report Type: 
  Country: None (occurrence: None)
  Receive Date: 20071210
  Receipt Date: 20071130
  Transmission Date: 20080405
  Serious: Yes (Other)
  Sender: FDA-Public Use
  Company Number: PHBS2007SE16058

PATIENT
  Sex: Female

DRUGS (2)
  1. TEGRETOL [Suspect]
     Indication: EPILEPSY
     Dosage: 1000 MG/DAY
     Route: 048
  2. STESOLID [Concomitant]
     Dosage: 10 MG, PRN

REACTIONS (5)
  - CONVULSION [None]
  - DRUG INEFFECTIVE [None]
  - INDUCED LABOUR [None]
  - NORMAL NEWBORN [None]
  - PREGNANCY [None]
